FAERS Safety Report 6517753-9 (Version None)
Quarter: 2009Q4

REPORT INFORMATION
  Report Type: 
  Country: None (occurrence: None)
  Receive Date: 20091224
  Receipt Date: 20091217
  Transmission Date: 20100525
  Serious: Yes (Hospitalization)
  Sender: FDA-Public Use
  Company Number: US-BRISTOL-MYERS SQUIBB COMPANY-14901409

PATIENT
  Age: 58 Year
  Sex: Female
  Weight: 89 kg

DRUGS (3)
  1. CARBOPLATIN [Suspect]
     Indication: NON-SMALL CELL LUNG CANCER
     Dosage: INITIATED WITH AUC=2 FOLLOWED BY CONSOLIDATION AUC=6-2 CYCLES EVERY 21DAYS
     Dates: start: 20090331, end: 20090630
  2. PACLITAXEL [Suspect]
     Indication: NON-SMALL CELL LUNG CANCER
     Dosage: INITIATED ON WEEKLY 45MG/M2 FOLLOWED BY CONSOLIDATION 200MG/M2 2 CYC EVERY 21 DAYS
     Dates: start: 20090331, end: 20090630
  3. RADIATION THERAPY [Suspect]
     Indication: NON-SMALL CELL LUNG CANCER
     Dosage: 1 DF - 72GY NO OF FRACTION - 37; NO OF ELAPSED DAYS - 59
     Dates: end: 20090529

REACTIONS (2)
  - OESOPHAGEAL STENOSIS [None]
  - OESOPHAGITIS [None]
